FAERS Safety Report 25435284 (Version 3)
Quarter: 2025Q3

REPORT INFORMATION
  Report Type: Report from Study
  Country: US (occurrence: US)
  Receive Date: 20250613
  Receipt Date: 20250919
  Transmission Date: 20251020
  Serious: No
  Sender: MALLINCKRODT
  Company Number: US-MALLINCKRODT-MNK202503608

PATIENT
  Age: 46 Year
  Sex: Female
  Weight: 224 kg

DRUGS (4)
  1. CORTICOTROPIN [Suspect]
     Active Substance: CORTICOTROPIN
     Indication: Systemic lupus erythematosus
     Route: 058
     Dates: start: 20250606, end: 2025
  2. RITUXAN [Concomitant]
     Active Substance: RITUXIMAB
  3. METHOTREXATE [Concomitant]
     Active Substance: METHOTREXATE
  4. CELLCEPT [Concomitant]
     Active Substance: MYCOPHENOLATE MOFETIL

REACTIONS (6)
  - Headache [Unknown]
  - Lethargy [Unknown]
  - Injection site pain [Unknown]
  - Injection site bruising [Not Recovered/Not Resolved]
  - Fatigue [Unknown]
  - Dizziness [Unknown]

NARRATIVE: CASE EVENT DATE: 20250601
